FAERS Safety Report 9221509 (Version 1)
Quarter: 2013Q2

REPORT INFORMATION
  Report Type: Spontaneous
  Country: US (occurrence: None)
  Receive Date: 20130408
  Receipt Date: 20130408
  Transmission Date: 20140414
  Serious: Yes (Other)
  Sender: FDA-Public Use
  Company Number: None

PATIENT
  Age: 39 Year
  Sex: Female
  Weight: 88.91 kg

DRUGS (1)
  1. AMBIEN [Suspect]
     Dosage: 1, DAILY, PO
     Route: 048
     Dates: start: 20130311, end: 20130404

REACTIONS (4)
  - Tinnitus [None]
  - Dizziness [None]
  - Gait disturbance [None]
  - Hypoacusis [None]
